FAERS Safety Report 10231219 (Version 1)
Quarter: 2014Q2

REPORT INFORMATION
  Report Type: Spontaneous
  Country: IT (occurrence: IT)
  Receive Date: 20140611
  Receipt Date: 20140611
  Transmission Date: 20141212
  Serious: Yes (Hospitalization)
  Sender: FDA-Public Use
  Company Number: IT-TEVA-486513ISR

PATIENT
  Age: 56 Year
  Sex: Female

DRUGS (3)
  1. FLUORURACILE TEVA [Suspect]
     Indication: SQUAMOUS CELL CARCINOMA
     Dosage: 5600 MILLIGRAM DAILY;
     Route: 042
     Dates: start: 20131210, end: 20131214
  2. MITOMYCIN C [Suspect]
     Indication: SQUAMOUS CELL CARCINOMA
     Dosage: 14 MILLIGRAM DAILY;
     Route: 041
     Dates: start: 20131210, end: 20131210
  3. ZOFRAN 4 MG [Concomitant]

REACTIONS (4)
  - Abdominal pain upper [Recovering/Resolving]
  - Asthenia [Recovering/Resolving]
  - Hypotension [Recovering/Resolving]
  - Vomiting [Recovering/Resolving]
